FAERS Safety Report 10592836 (Version 1)
Quarter: 2014Q4

REPORT INFORMATION
  Report Type: Spontaneous
  Country: US (occurrence: None)
  Receive Date: 20141118
  Receipt Date: 20141118
  Transmission Date: 20150529
  Serious: Yes (Other)
  Sender: FDA-Public Use
  Company Number: None

PATIENT
  Age: 77 Year
  Sex: Female

DRUGS (1)
  1. ORENCIA [Suspect]
     Active Substance: ABATACEPT
     Indication: RHEUMATOID ARTHRITIS
     Dosage: 750MG, EVERY 2 WEEKS LOAD
     Route: 042
     Dates: start: 20141007, end: 20141021

REACTIONS (2)
  - Oedema peripheral [None]
  - Joint swelling [None]

NARRATIVE: CASE EVENT DATE: 20141021
